FAERS Safety Report 18106578 (Version 3)
Quarter: 2020Q4

REPORT INFORMATION
  Report Type: Spontaneous
  Country: US (occurrence: US)
  Receive Date: 20200803
  Receipt Date: 20201001
  Transmission Date: 20210113
  Serious: No
  Sender: FDA-Public Use
  Company Number: US-ASTRAZENECA-2020SE95536

PATIENT
  Sex: Female
  Weight: 100.7 kg

DRUGS (13)
  1. VITAMIN [Concomitant]
     Active Substance: VITAMINS
  2. BYDUREON BCISE [Suspect]
     Active Substance: EXENATIDE
     Indication: DIABETES MELLITUS
     Route: 058
     Dates: start: 202005
  3. DIGOXIN. [Concomitant]
     Active Substance: DIGOXIN
  4. ZETIA [Concomitant]
     Active Substance: EZETIMIBE
  5. PROTONIX [Concomitant]
     Active Substance: PANTOPRAZOLE SODIUM
  6. BUMETANIDE. [Concomitant]
     Active Substance: BUMETANIDE
     Indication: POLYURIA
  7. PROBIOTIC [Concomitant]
     Active Substance: PROBIOTICS NOS
     Dosage: DAILY
  8. NIACIN. [Concomitant]
     Active Substance: NIACIN
  9. ASPIRIN. [Concomitant]
     Active Substance: ASPIRIN
  10. PRADAXA [Concomitant]
     Active Substance: DABIGATRAN ETEXILATE MESYLATE
  11. METOPROLOL. [Suspect]
     Active Substance: METOPROLOL
     Route: 065
  12. CALCIUM WITH VITAMIN D [Concomitant]
     Active Substance: CALCIUM\VITAMIN D
  13. LEVOTHYROXINE. [Concomitant]
     Active Substance: LEVOTHYROXINE
     Indication: THYROID DISORDER

REACTIONS (5)
  - Vomiting [Unknown]
  - Injection site nodule [Unknown]
  - Nausea [Unknown]
  - Device leakage [Unknown]
  - Device malfunction [Unknown]
